FAERS Safety Report 12768695 (Version 1)
Quarter: 2016Q3

REPORT INFORMATION
  Report Type: Spontaneous
  Country: US (occurrence: US)
  Receive Date: 20160921
  Receipt Date: 20160921
  Transmission Date: 20161109
  Serious: No
  Sender: FDA-Public Use
  Company Number: US-JAZZ-2016-US-010167

PATIENT
  Sex: Female

DRUGS (23)
  1. PROGESTERONE. [Concomitant]
     Active Substance: PROGESTERONE
  2. BACLOFEN. [Concomitant]
     Active Substance: BACLOFEN
  3. MULTIVITAMINS [Concomitant]
     Active Substance: VITAMINS
  4. RANITIDINE. [Concomitant]
     Active Substance: RANITIDINE
  5. REMICADE [Concomitant]
     Active Substance: INFLIXIMAB
  6. HYDROCODONE/ACETAMINOPHEN [Concomitant]
     Active Substance: ACETAMINOPHEN\HYDROCODONE
  7. ESCITALOPRAM [Concomitant]
     Active Substance: ESCITALOPRAM OXALATE
  8. XYREM [Suspect]
     Active Substance: SODIUM OXYBATE
     Dosage: 4.5 G, BID
     Route: 048
     Dates: start: 201409
  9. DEXILANT [Concomitant]
     Active Substance: DEXLANSOPRAZOLE
  10. LOPERAMIDE [Concomitant]
     Active Substance: LOPERAMIDE
  11. OXYCODONE HYDROCHLORIDE. [Concomitant]
     Active Substance: OXYCODONE HYDROCHLORIDE
  12. XYREM [Suspect]
     Active Substance: SODIUM OXYBATE
     Indication: NARCOLEPSY
     Dosage: 2.25 G, BID
     Route: 048
     Dates: start: 201311, end: 201312
  13. OXYCONTIN [Concomitant]
     Active Substance: OXYCODONE HYDROCHLORIDE
  14. VITAMIN D [Concomitant]
     Active Substance: CHOLECALCIFEROL
  15. DIAZEPAM. [Concomitant]
     Active Substance: DIAZEPAM
  16. ESTROGEN [Concomitant]
     Active Substance: ESTRONE\SUS SCROFA OVARY
  17. FERROUS SULFATE. [Concomitant]
     Active Substance: FERROUS SULFATE
  18. XYREM [Suspect]
     Active Substance: SODIUM OXYBATE
     Dosage: DOSE ADJUSTMENTS
     Route: 048
     Dates: start: 201312, end: 201409
  19. ABILIFY [Concomitant]
     Active Substance: ARIPIPRAZOLE
  20. GABAPENTIN. [Concomitant]
     Active Substance: GABAPENTIN
  21. HYDROXYCHLOROQUINE [Concomitant]
     Active Substance: HYDROXYCHLOROQUINE
  22. ADDERALL [Concomitant]
     Active Substance: AMPHETAMINE ASPARTATE\AMPHETAMINE SULFATE\DEXTROAMPHETAMINE SACCHARATE\DEXTROAMPHETAMINE SULFATE
  23. OXYCODONE AND ACETAMINOPHEN [Concomitant]
     Active Substance: ACETAMINOPHEN\OXYCODONE HYDROCHLORIDE

REACTIONS (4)
  - Therapeutic response unexpected [Unknown]
  - Arthritis [Not Recovered/Not Resolved]
  - Condition aggravated [Not Recovered/Not Resolved]
  - Pre-existing condition improved [Unknown]

NARRATIVE: CASE EVENT DATE: 2013
